FAERS Safety Report 20348221 (Version 2)
Quarter: 2022Q2

REPORT INFORMATION
  Report Type: Spontaneous
  Country: US (occurrence: US)
  Receive Date: 20220119
  Receipt Date: 20220617
  Transmission Date: 20220721
  Serious: No
  Sender: FDA-Public Use
  Company Number: US-BEH-2022140645

PATIENT
  Sex: Female

DRUGS (2)
  1. HIZENTRA [Suspect]
     Active Substance: HUMAN IMMUNOGLOBULIN G
     Indication: Immunodeficiency common variable
     Dosage: 10 GRAM, QW
     Route: 058
     Dates: start: 20210929
  2. HIZENTRA [Suspect]
     Active Substance: HUMAN IMMUNOGLOBULIN G
     Dosage: 10 MILLIGRAM, QW
     Route: 058

REACTIONS (6)
  - Hepatic steatosis [Unknown]
  - Weight increased [Unknown]
  - Oedema peripheral [Unknown]
  - Erythema [Unknown]
  - Dry skin [Unknown]
  - Hepatic enzyme increased [Unknown]
